FAERS Safety Report 24286985 (Version 2)
Quarter: 2024Q3

REPORT INFORMATION
  Report Type: Report from Study
  Country: US (occurrence: US)
  Receive Date: 20240905
  Receipt Date: 20240913
  Transmission Date: 20241016
  Serious: Yes (Hospitalization)
  Sender: NOVARTIS
  Company Number: US-002147023-NVSC2024US175643

PATIENT
  Age: 54 Year
  Sex: Female
  Weight: 63.5 kg

DRUGS (4)
  1. GLEEVEC [Suspect]
     Active Substance: IMATINIB MESYLATE
     Indication: Product used for unknown indication
     Dosage: 100 MG, QD
     Route: 065
     Dates: start: 20210707, end: 20210726
  2. BINIMETINIB [Suspect]
     Active Substance: BINIMETINIB
     Indication: Product used for unknown indication
     Dosage: 15 MG, BID
     Route: 065
     Dates: start: 20210707, end: 20210726
  3. ONFI [Concomitant]
     Active Substance: CLOBAZAM
     Indication: Seizure
     Dosage: UNK
     Route: 048
     Dates: start: 20210209
  4. DECADRON [Concomitant]
     Active Substance: DEXAMETHASONE
     Indication: Seizure
     Dosage: UNK
     Route: 048
     Dates: start: 20200823

REACTIONS (13)
  - Haemorrhage intracranial [Recovered/Resolved]
  - Asthenia [Recovered/Resolved]
  - Thrombocytopenia [Unknown]
  - Dysstasia [Unknown]
  - Mental status changes [Unknown]
  - Muscular weakness [Unknown]
  - Abdominal discomfort [Unknown]
  - Headache [Unknown]
  - Lethargy [Unknown]
  - Pyrexia [Unknown]
  - Hyponatraemia [Unknown]
  - Fatigue [Unknown]
  - Hypophagia [Unknown]

NARRATIVE: CASE EVENT DATE: 20210726
